FAERS Safety Report 23028194 (Version 1)
Quarter: 2023Q4

REPORT INFORMATION
  Report Type: Report from Study
  Country: US (occurrence: US)
  Receive Date: 20231004
  Receipt Date: 20231004
  Transmission Date: 20240110
  Serious: Yes (Other)
  Sender: FDA-Public Use
  Company Number: US-GILEAD-2023-0645903

PATIENT
  Age: 29 Year
  Sex: Female

DRUGS (2)
  1. AZTREONAM LYSINE [Suspect]
     Active Substance: AZTREONAM LYSINE
     Indication: Cystic fibrosis
     Dosage: 75 MG (ALTERA NEBULIZER EVERY 8 HOURS FOR 28 DAYS ON THEN 28 DAYS OFF - REPEAT CYCLE AS DIRECTED)
     Route: 055
     Dates: start: 2020
  2. TOBI [Suspect]
     Active Substance: TOBRAMYCIN
     Indication: Cystic fibrosis
     Dosage: UNKNOWN
     Route: 065
     Dates: end: 20230927

REACTIONS (2)
  - Cystic fibrosis [Unknown]
  - Haemoptysis [Unknown]

NARRATIVE: CASE EVENT DATE: 20230918
